FAERS Safety Report 14798191 (Version 1)
Quarter: 2018Q2

REPORT INFORMATION
  Report Type: Spontaneous
  Country: US (occurrence: US)
  Receive Date: 20180415
  Receipt Date: 20180415
  Transmission Date: 20180711
  Serious: No
  Sender: FDA-Public Use
  Company Number: None

PATIENT
  Age: 64 Year
  Sex: Female
  Weight: 45.9 kg

DRUGS (2)
  1. RANITIDINE 150 [Suspect]
     Active Substance: RANITIDINE HYDROCHLORIDE
     Indication: GASTROOESOPHAGEAL REFLUX DISEASE
     Dosage: ?          QUANTITY:24 TABLET(S);?
     Route: 048
     Dates: start: 20180407, end: 20180412
  2. VITAMIN D3 [Concomitant]
     Active Substance: CHOLECALCIFEROL

REACTIONS (4)
  - Burning sensation [None]
  - Swollen tongue [None]
  - Tongue coated [None]
  - Dysgeusia [None]

NARRATIVE: CASE EVENT DATE: 20180411
